FAERS Safety Report 5191172-2 (Version None)
Quarter: 2006Q4

REPORT INFORMATION
  Report Type: 
  Country: None (occurrence: None)
  Receive Date: 20061218
  Receipt Date: 20061207
  Transmission Date: 20070319
  Serious: Yes (Other)
  Sender: FDA-Public Use
  Company Number: 2006151982

PATIENT
  Age: 65 Year
  Sex: Male

DRUGS (5)
  1. REVATIO [Suspect]
     Indication: PULMONARY HYPERTENSION
     Dosage: 100 MG (50MG, 2 IN 1 D), ORAL
     Route: 048
     Dates: start: 20060101
  2. CLOPIDOGREL [Concomitant]
  3. SIMVASTATIN [Concomitant]
  4. ACETYLSALICYLIC ACID SRT [Concomitant]
  5. ACETYLCYSTEINE [Concomitant]

REACTIONS (2)
  - BLOOD BILIRUBIN INCREASED [None]
  - GAMMA-GLUTAMYLTRANSFERASE INCREASED [None]
